FAERS Safety Report 15208937 (Version 3)
Quarter: 2019Q1

REPORT INFORMATION
  Report Type: Spontaneous
  Country: US (occurrence: US)
  Receive Date: 20180727
  Receipt Date: 20190110
  Transmission Date: 20190417
  Serious: No
  Sender: FDA-Public Use
  Company Number: US-ASTRAZENECA-2018SE94691

PATIENT
  Age: 70 Year
  Sex: Female
  Weight: 77.1 kg

DRUGS (19)
  1. OMEPRAZOLE. [Suspect]
     Active Substance: OMEPRAZOLE
     Route: 048
  2. COQ 10 [Concomitant]
     Active Substance: UBIDECARENONE
  3. SYNTHROID [Concomitant]
     Active Substance: LEVOTHYROXINE SODIUM
  4. METFORMIN [Concomitant]
     Active Substance: METFORMIN HYDROCHLORIDE
     Indication: DIABETES MELLITUS
  5. CALCIUM [Concomitant]
     Active Substance: CALCIUM
     Indication: ANAEMIA
  6. VITAMIN C [Concomitant]
     Active Substance: ASCORBIC ACID
  7. BYDUREON BCISE [Suspect]
     Active Substance: EXENATIDE
     Indication: TYPE 2 DIABETES MELLITUS
     Route: 058
  8. IRON [Concomitant]
     Active Substance: IRON
     Indication: ANAEMIA
  9. LOSARTAN. [Concomitant]
     Active Substance: LOSARTAN
     Indication: BLOOD PRESSURE ABNORMAL
  10. ELIQUIS [Concomitant]
     Active Substance: APIXABAN
     Indication: ATRIAL FIBRILLATION
  11. DILTIAZEM HYDROCHLORIDE. [Concomitant]
     Active Substance: DILTIAZEM HYDROCHLORIDE
     Indication: HYPERTENSION
  12. VITAMIN B3 [Concomitant]
     Active Substance: NIACIN
  13. BYETTA [Suspect]
     Active Substance: EXENATIDE
     Indication: TYPE 2 DIABETES MELLITUS
     Route: 058
  14. VITAMIN D3 [Concomitant]
     Active Substance: CHOLECALCIFEROL
  15. STOOL SOFTENER (DOCUSATE) [Concomitant]
     Active Substance: DOCUSATE
     Indication: SURGERY
     Dosage: DAILY
  16. ATORVASTATIN [Concomitant]
     Active Substance: ATORVASTATIN
     Indication: HYPERTENSION
  17. LANTUS [Concomitant]
     Active Substance: INSULIN GLARGINE
     Indication: TYPE 2 DIABETES MELLITUS
     Route: 058
  18. MAGNESIUM [Concomitant]
     Active Substance: MAGNESIUM
     Indication: PROPHYLAXIS
  19. BABY ASPIRIN [Concomitant]
     Active Substance: ASPIRIN

REACTIONS (19)
  - Bleeding time prolonged [Unknown]
  - Injection site haemorrhage [Unknown]
  - Injection site pain [Unknown]
  - Injection site discolouration [Unknown]
  - Anaemia [Unknown]
  - Wound [Unknown]
  - Rib fracture [Unknown]
  - Haemorrhage [Unknown]
  - Irritable bowel syndrome [Unknown]
  - Injection site mass [Unknown]
  - Injury associated with device [Unknown]
  - Glycosylated haemoglobin increased [Unknown]
  - Product storage error [Unknown]
  - Device leakage [Unknown]
  - Increased tendency to bruise [Unknown]
  - Blood pressure abnormal [Unknown]
  - Eye disorder [Unknown]
  - Arthritis [Unknown]
  - Body height decreased [Unknown]
